FAERS Safety Report 10380177 (Version 3)
Quarter: 2014Q4

REPORT INFORMATION
  Report Type: Spontaneous
  Country: US (occurrence: US)
  Receive Date: 20140813
  Receipt Date: 20141008
  Transmission Date: 20150528
  Serious: Yes (Hospitalization)
  Sender: FDA-Public Use
  Company Number: US-BEH-2014044367

PATIENT
  Age: 57 Year
  Sex: Female
  Weight: 105 kg

DRUGS (1)
  1. HIZENTRA [Suspect]
     Active Substance: HUMAN IMMUNOGLOBULIN G
     Indication: PRIMARY IMMUNODEFICIENCY SYNDROME
     Dosage: 4 SITES
     Route: 058
     Dates: start: 20140725

REACTIONS (15)
  - Injection site pruritus [Recovering/Resolving]
  - Nausea [Recovering/Resolving]
  - Decreased appetite [Recovering/Resolving]
  - Muscle spasms [Recovering/Resolving]
  - Abdominal pain [Recovering/Resolving]
  - Dehydration [Recovering/Resolving]
  - Pain [Recovering/Resolving]
  - Headache [Recovering/Resolving]
  - Dizziness [Recovering/Resolving]
  - Arthralgia [Recovering/Resolving]
  - Hypersensitivity [Recovering/Resolving]
  - Serum sickness [Recovering/Resolving]
  - Serum sickness [Recovering/Resolving]
  - Diarrhoea [Recovering/Resolving]
  - Vision blurred [Recovering/Resolving]

NARRATIVE: CASE EVENT DATE: 20140725
